FAERS Safety Report 5692768-1 (Version None)
Quarter: 2008Q2

REPORT INFORMATION
  Report Type: 
  Country: None (occurrence: None)
  Receive Date: 20080401
  Receipt Date: 20080313
  Transmission Date: 20081010
  Serious: Yes (Other)
  Sender: FDA-Public Use
  Company Number: 2008S1004253

PATIENT
  Sex: Female

DRUGS (9)
  1. PREDNISONE [Suspect]
     Indication: MALIGNANT HISTIOCYTOSIS
  2. MERCAPTOPURINE [Suspect]
     Indication: MALIGNANT HISTIOCYTOSIS
     Dosage: ORAL
     Route: 048
  3. ETOPOSIDE [Suspect]
     Indication: MALIGNANT HISTIOCYTOSIS
  4. METHOTREXATE [Suspect]
     Indication: MALIGNANT HISTIOCYTOSIS
  5. VINBLASTINE SULFATE [Suspect]
     Indication: MALIGNANT HISTIOCYTOSIS
  6. CLADRIBINE [Suspect]
     Indication: MALIGNANT HISTIOCYTOSIS
  7. VINCRISTINE [Suspect]
     Indication: MALIGNANT HISTIOCYTOSIS
  8. CYTARABINE [Suspect]
     Indication: MALIGNANT HISTIOCYTOSIS
  9. ASPARAGINASE [Suspect]
     Indication: MALIGNANT HISTIOCYTOSIS

REACTIONS (6)
  - ANAPHYLACTIC REACTION [None]
  - B-CELL LYMPHOMA [None]
  - EPSTEIN-BARR VIRUS INFECTION [None]
  - LYMPHOPROLIFERATIVE DISORDER [None]
  - PULMONARY MYCOSIS [None]
  - SINUSITIS FUNGAL [None]
